FAERS Safety Report 5203388-7 (Version None)
Quarter: 2007Q1

REPORT INFORMATION
  Report Type: 
  Country: None (occurrence: None)
  Receive Date: 20070105
  Receipt Date: 20061222
  Transmission Date: 20070707
  Serious: Yes (Hospitalization)
  Sender: FDA-Public Use
  Company Number: THYR-10365

PATIENT
  Age: 37 Year
  Sex: Female
  Weight: 100 kg

DRUGS (5)
  1. THYROGEN [Suspect]
     Indication: THYROIDECTOMY
     Dosage: 0.9 MG QD IM
     Route: 030
     Dates: start: 20061017, end: 20061018
  2. PRAZEPAM [Concomitant]
  3. LEVOTHYROXINE SODIUM [Concomitant]
  4. PROPRANOLOL [Concomitant]
  5. AFANAX [Concomitant]

REACTIONS (6)
  - BACK PAIN [None]
  - DIZZINESS [None]
  - HEADACHE [None]
  - MUSCLE SPASMS [None]
  - NAUSEA [None]
  - PARAESTHESIA [None]
